FAERS Safety Report 10938601 (Version 2)
Quarter: 2015Q2

REPORT INFORMATION
  Report Type: Spontaneous
  Country: US (occurrence: US)
  Receive Date: 20150321
  Receipt Date: 20150525
  Transmission Date: 20150821
  Serious: Yes (Hospitalization)
  Sender: FDA-Public Use
  Company Number: US-JNJFOC-20111208495

PATIENT
  Age: 42 Year
  Sex: Male
  Weight: 120.66 kg

DRUGS (3)
  1. VANOS [Concomitant]
     Active Substance: FLUOCINONIDE
     Route: 061
     Dates: start: 20110421
  2. VECTICAL [Concomitant]
     Active Substance: CALCITRIOL
     Route: 061
  3. STELARA [Suspect]
     Active Substance: USTEKINUMAB
     Indication: PSORIASIS
     Route: 058
     Dates: start: 20111208, end: 20111209

REACTIONS (2)
  - Hypersensitivity [Recovered/Resolved]
  - Dyspnoea [Recovered/Resolved]

NARRATIVE: CASE EVENT DATE: 20111209
